FAERS Safety Report 8547635-2 (Version None)
Quarter: 2012Q3

REPORT INFORMATION
  Report Type: 
  Country: None (occurrence: None)
  Receive Date: 20120727
  Receipt Date: 20120425
  Transmission Date: 20120928
  Serious: Yes (Hospitalization)
  Sender: FDA-Public Use
  Company Number: US-ASTRAZENECA-2012SE26964

PATIENT
  Age: 50 Year
  Sex: Female

DRUGS (14)
  1. SEROQUEL [Suspect]
     Route: 048
     Dates: start: 20100101
  2. SPIRIVA [Suspect]
     Indication: BRONCHITIS CHRONIC
     Route: 055
     Dates: start: 20040101
  3. KLONOPIN [Concomitant]
     Indication: PANIC ATTACK
     Route: 048
     Dates: start: 20020101
  4. KLONOPIN [Concomitant]
     Indication: ANXIETY
     Route: 048
     Dates: start: 20020101
  5. SPIRIVA [Suspect]
     Indication: CHRONIC OBSTRUCTIVE PULMONARY DISEASE
     Route: 055
     Dates: start: 20040101
  6. HYDROCODONE BITARTRATE [Concomitant]
     Indication: BACK PAIN
     Dosage: 40/200 MGS QID
     Route: 048
     Dates: start: 19980101
  7. SEROQUEL [Suspect]
     Indication: SCHIZOPHRENIA
     Route: 048
     Dates: start: 20020101, end: 20100101
  8. SPIRIVA [Suspect]
     Indication: EMPHYSEMA
     Route: 055
     Dates: start: 20040101
  9. SYMBICORT [Concomitant]
     Indication: CHRONIC OBSTRUCTIVE PULMONARY DISEASE
     Dosage: TWO PUFFS TWO TIMES A DAY
     Route: 055
     Dates: start: 20020101
  10. TRAZODONE HCL [Concomitant]
     Indication: INSOMNIA
     Route: 048
     Dates: start: 20000101
  11. EFFEXOR [Concomitant]
     Indication: BIPOLAR DISORDER
     Route: 048
     Dates: start: 20020101
  12. LEXAPRO [Concomitant]
     Route: 048
     Dates: start: 20020101
  13. POTASSIUM CHLORIDE [Concomitant]
     Indication: MINERAL SUPPLEMENTATION
     Route: 048
  14. VITAMIN D [Concomitant]
     Indication: VITAMIN SUPPLEMENTATION
     Route: 048

REACTIONS (5)
  - DYSPNOEA [None]
  - DIARRHOEA [None]
  - PROCEDURAL PAIN [None]
  - CONVULSION [None]
  - VOMITING [None]
